FAERS Safety Report 6684293-6 (Version None)
Quarter: 2010Q2

REPORT INFORMATION
  Report Type: 
  Country: None (occurrence: None)
  Receive Date: 20100416
  Receipt Date: 20100405
  Transmission Date: 20101027
  Serious: Yes (Other)
  Sender: FDA-Public Use
  Company Number: PHEH2006US08086

PATIENT
  Sex: Female
  Weight: 58.2 kg

DRUGS (18)
  1. ZOMETA [Suspect]
     Indication: METASTASES TO BONE
     Dosage: 4 MG IV MONTHLY
     Route: 042
     Dates: start: 20031002, end: 20060302
  2. ANZEMET [Concomitant]
  3. PERCOCET [Concomitant]
  4. TYLENOL W/ CODEINE [Concomitant]
  5. XELODA [Concomitant]
  6. NEULASTA [Concomitant]
  7. METHOTREXATE [Concomitant]
  8. FLUOROURACIL [Concomitant]
  9. CYCLOPHOSPHAMIDE [Concomitant]
  10. AVASTIN [Concomitant]
  11. FEMARA [Concomitant]
  12. LETROZOLE [Concomitant]
  13. PACLITAXEL [Concomitant]
  14. DOCETAXEL [Concomitant]
  15. BEVACIZUMAB [Concomitant]
  16. NAVELBINE [Concomitant]
  17. GEMCITABINE HCL [Concomitant]
  18. CAPECITABINE [Concomitant]

REACTIONS (25)
  - ALVEOLAR OSTEITIS [None]
  - BACK PAIN [None]
  - BREAST RECONSTRUCTION [None]
  - CERVIX CARCINOMA STAGE 0 [None]
  - CHILLS [None]
  - DECREASED APPETITE [None]
  - INFECTION [None]
  - INTERVERTEBRAL DISC PROTRUSION [None]
  - LOOP ELECTROSURGICAL EXCISION PROCEDURE [None]
  - LYMPHADENECTOMY [None]
  - MALIGNANT NEOPLASM PROGRESSION [None]
  - MASTECTOMY [None]
  - METASTASES TO LIVER [None]
  - MUCOSAL INFLAMMATION [None]
  - MUSCULOSKELETAL DISCOMFORT [None]
  - NEPHROLITHIASIS [None]
  - OPEN WOUND [None]
  - OROPHARYNGEAL PAIN [None]
  - OSTEONECROSIS [None]
  - PAIN IN JAW [None]
  - PERIPHERAL COLDNESS [None]
  - PHARYNGEAL OEDEMA [None]
  - SALPINGO-OOPHORECTOMY BILATERAL [None]
  - SEQUESTRECTOMY [None]
  - TOOTH EXTRACTION [None]
